FAERS Safety Report 5086679-2 (Version None)
Quarter: 2006Q3

REPORT INFORMATION
  Report Type: 
  Country: None (occurrence: None)
  Receive Date: 20060823
  Receipt Date: 20060125
  Transmission Date: 20061208
  Serious: No
  Sender: FDA-Public Use
  Company Number: US-GLAXOSMITHKLINE-A0590884A

PATIENT
  Age: 48 Year
  Sex: Female

DRUGS (3)
  1. MALARONE [Suspect]
     Indication: MALARIA
     Route: 048
  2. LESCOL [Concomitant]
  3. HERB MEDICATION [Concomitant]

REACTIONS (7)
  - LYMPHADENOPATHY [None]
  - MOUTH ULCERATION [None]
  - PRURITUS [None]
  - RASH [None]
  - SCAR [None]
  - STOMATITIS [None]
  - TONGUE ULCERATION [None]
